FAERS Safety Report 22009501 (Version 1)
Quarter: 2023Q1

REPORT INFORMATION
  Report Type: Spontaneous
  Country: None (occurrence: US)
  Receive Date: 20230220
  Receipt Date: 20230220
  Transmission Date: 20230417
  Serious: Yes (Hospitalization, Other)
  Sender: FDA-Public Use
  Company Number: US-Oxford Pharmaceuticals, LLC-2138175

PATIENT
  Sex: Male

DRUGS (2)
  1. BACLOFEN [Suspect]
     Active Substance: BACLOFEN
     Indication: Withdrawal syndrome
  2. LORAZEPAM [Suspect]
     Active Substance: LORAZEPAM
     Route: 042

REACTIONS (8)
  - Generalised tonic-clonic seizure [Recovering/Resolving]
  - Autonomic nervous system imbalance [Recovering/Resolving]
  - Agitation [Recovered/Resolved]
  - Nausea [Recovering/Resolving]
  - Tremor [Recovered/Resolved]
  - Hallucination [Recovered/Resolved]
  - Product use in unapproved indication [Unknown]
  - Prescribed underdose [Unknown]
